FAERS Safety Report 6162937-5 (Version None)
Quarter: 2009Q2

REPORT INFORMATION
  Report Type: 
  Country: None (occurrence: None)
  Receive Date: 20090420
  Receipt Date: 20090414
  Transmission Date: 20091009
  Serious: Yes (Hospitalization)
  Sender: FDA-Public Use
  Company Number: TPA2009A00587

PATIENT

DRUGS (4)
  1. ACTOPLUS MET [Suspect]
     Indication: TYPE 2 DIABETES MELLITUS
     Dosage: 15/850 MG
  2. ACTOS [Suspect]
     Indication: TYPE 2 DIABETES MELLITUS
  3. METFORMIN HCL [Concomitant]
  4. ACE INHIBITORS (ACE INHIBITORS AND DIURECTICS) [Concomitant]

REACTIONS (2)
  - ANGIOEDEMA [None]
  - TREATMENT NONCOMPLIANCE [None]
